FAERS Safety Report 7381685-7 (Version None)
Quarter: 2011Q1

REPORT INFORMATION
  Report Type: 
  Country: None (occurrence: None)
  Receive Date: 20110329
  Receipt Date: 20110324
  Transmission Date: 20110831
  Serious: Yes (Life-Threatening, Hospitalization)
  Sender: FDA-Public Use
  Company Number: FR-ABBOTT-11P-056-0714116-00

PATIENT
  Sex: Male

DRUGS (7)
  1. KALETRA [Suspect]
     Indication: HIV INFECTION
     Route: 048
     Dates: start: 20060101, end: 20110214
  2. FLECTOR [Concomitant]
     Indication: ARTHRALGIA
     Route: 061
  3. VOLTAREN [Suspect]
     Indication: ARTHRALGIA
  4. METFORMINE [Concomitant]
     Indication: PRODUCT USED FOR UNKNOWN INDICATION
     Dates: start: 20100901, end: 20101201
  5. BIPROFENID [Suspect]
     Indication: ARTHRALGIA
     Route: 048
     Dates: start: 20101201, end: 20101201
  6. TRUVADA [Suspect]
     Indication: HIV INFECTION
     Route: 048
     Dates: start: 20060101, end: 20110214
  7. VOLTAREN [Suspect]
     Dates: start: 20101201, end: 20110120

REACTIONS (16)
  - FANCONI SYNDROME [None]
  - RENAL FAILURE ACUTE [None]
  - HYPOKALAEMIA [None]
  - ELECTROCARDIOGRAM U-WAVE ABNORMALITY [None]
  - HYPOPHOSPHATAEMIA [None]
  - DIARRHOEA [None]
  - MYALGIA [None]
  - ELECTROCARDIOGRAM QT PROLONGED [None]
  - MUSCULOSKELETAL PAIN [None]
  - CONDITION AGGRAVATED [None]
  - HYPERPHOSPHATURIA [None]
  - ABDOMINAL PAIN [None]
  - WEIGHT DECREASED [None]
  - GAIT DISTURBANCE [None]
  - ARTHRALGIA [None]
  - ASTHENIA [None]
